FAERS Safety Report 7850928-5 (Version None)
Quarter: 2011Q4

REPORT INFORMATION
  Report Type: 
  Country: None (occurrence: None)
  Receive Date: 20111026
  Receipt Date: 20111018
  Transmission Date: 20120403
  Serious: No
  Sender: FDA-Public Use
  Company Number: US-B.I. PHARMACEUTICALS,INC./RIDGEFIELD-2006-BP-12635BP

PATIENT
  Sex: Female

DRUGS (10)
  1. SYNTHROID [Concomitant]
  2. MICARDIS [Suspect]
     Dosage: 80 MG
     Route: 048
     Dates: start: 20080101, end: 20110920
  3. NOVOLOG [Concomitant]
  4. MICARDIS [Suspect]
     Indication: HYPERTENSION
     Dosage: 80 MG
     Route: 048
     Dates: start: 20060101, end: 20060101
  5. NASACORT [Concomitant]
  6. LASIX [Concomitant]
  7. MICARDIS [Suspect]
     Dosage: 80 MG
     Route: 048
     Dates: start: 20110921
  8. ASPIRIN [Concomitant]
  9. PREMARIN [Concomitant]
  10. GLUCOTROL XL [Concomitant]

REACTIONS (5)
  - JOINT SWELLING [None]
  - DYSGEUSIA [None]
  - HEART RATE DECREASED [None]
  - VENTRICULAR EXTRASYSTOLES [None]
  - DRUG INEFFECTIVE [None]
